FAERS Safety Report 16858048 (Version 7)
Quarter: 2020Q1

REPORT INFORMATION
  Report Type: Report from Study
  Country: FR (occurrence: FR)
  Receive Date: 20190926
  Receipt Date: 20200129
  Transmission Date: 20200409
  Serious: Yes (Hospitalization)
  Sender: FDA-Public Use
  Company Number: FR-EISAI MEDICAL RESEARCH-EC-2019-062580

PATIENT
  Age: 72 Year
  Sex: Male
  Weight: 108 kg

DRUGS (15)
  1. PLACEBO [Suspect]
     Active Substance: UNSPECIFIED INGREDIENT
     Indication: HEPATOCELLULAR CARCINOMA
     Route: 041
     Dates: start: 20190419, end: 20190712
  2. PLACEBO [Suspect]
     Active Substance: UNSPECIFIED INGREDIENT
     Route: 041
     Dates: start: 20190822
  3. DERMOVAL [Concomitant]
     Dates: start: 20190715, end: 20191001
  4. TRAMADOL HYDROCHLORIDE. [Concomitant]
     Active Substance: TRAMADOL HYDROCHLORIDE
     Dates: start: 20190429
  5. LANSOYL [Concomitant]
     Active Substance: MINERAL OIL
     Dates: start: 20190712
  6. LENVATINIB [Suspect]
     Active Substance: LENVATINIB
     Indication: HEPATOCELLULAR CARCINOMA
     Route: 048
     Dates: start: 20190419, end: 20190810
  7. METFORMIN [Concomitant]
     Active Substance: METFORMIN HYDROCHLORIDE
     Dates: start: 201501
  8. UREA CREAM [Concomitant]
     Active Substance: UREA
     Dates: start: 20190712, end: 20191001
  9. POLYETHYLENE GLYCOL [Concomitant]
     Active Substance: POLYETHYLENE GLYCOLS
     Dates: start: 20190709
  10. LENVATINIB [Suspect]
     Active Substance: LENVATINIB
     Route: 048
     Dates: start: 20190814, end: 20190821
  11. LENVATINIB [Suspect]
     Active Substance: LENVATINIB
     Dosage: STARTING DOSE AT 12 MG, FLUCTUATED DOSAGE
     Route: 048
     Dates: start: 20190822
  12. PLACEBO [Suspect]
     Active Substance: UNSPECIFIED INGREDIENT
     Route: 041
     Dates: start: 20190802, end: 20190802
  13. DIAMICRON [Concomitant]
     Active Substance: GLICLAZIDE
     Dates: start: 201201, end: 20190924
  14. EFFIDIA [Concomitant]
     Dates: start: 20190715, end: 20191001
  15. IRBESARTAN. [Concomitant]
     Active Substance: IRBESARTAN
     Dates: start: 20190524, end: 20190822

REACTIONS (1)
  - Limb injury [Not Recovered/Not Resolved]

NARRATIVE: CASE EVENT DATE: 20190820
